FAERS Safety Report 4549057-8 (Version None)
Quarter: 2005Q1

REPORT INFORMATION
  Report Type: 
  Country: None (occurrence: None)
  Receive Date: 20041227
  Receipt Date: 20041014
  Transmission Date: 20050727
  Serious: No
  Sender: FDA-Public Use
  Company Number: 04P-163-0264750-00

PATIENT
  Age: 52 Year
  Sex: Female
  Weight: 62.1428 kg

DRUGS (8)
  1. HUMIRA [Suspect]
     Indication: RHEUMATOID ARTHRITIS
     Dosage: 40 MG, 1 IN 2 WK, SUBCUTANEOUS
     Route: 058
     Dates: start: 20030601
  2. METHOTREXATE [Suspect]
     Indication: RHEUMATOID ARTHRITIS
     Dosage: SEE IMAGE
     Route: 048
     Dates: end: 20040101
  3. METHOTREXATE [Suspect]
     Indication: RHEUMATOID ARTHRITIS
     Dosage: SEE IMAGE
     Route: 048
     Dates: start: 20040201, end: 20040401
  4. METHOTREXATE [Suspect]
     Indication: RHEUMATOID ARTHRITIS
     Dosage: SEE IMAGE
     Route: 048
     Dates: start: 20040501, end: 20040601
  5. FOLIC ACID [Concomitant]
  6. PROPACET 100 [Concomitant]
  7. CALCIUM CARBONATE [Concomitant]
  8. ACETAMINOPHEN [Concomitant]

REACTIONS (2)
  - HEPATIC ENZYME INCREASED [None]
  - INJECTION SITE IRRITATION [None]
